FAERS Safety Report 8848860 (Version 1)
Quarter: 2012Q4

REPORT INFORMATION
  Report Type: Spontaneous
  Country: US (occurrence: None)
  Receive Date: 20121017
  Receipt Date: 20121017
  Transmission Date: 20130627
  Serious: Yes (Death)
  Sender: FDA-Public Use
  Company Number: None

PATIENT
  Age: 59 Year
  Sex: Female
  Weight: 65.32 kg

DRUGS (1)
  1. AFINITOR [Suspect]
     Indication: LUNG CANCER
     Dates: start: 20120421, end: 20120914

REACTIONS (1)
  - Lung disorder [None]
